FAERS Safety Report 23652927 (Version 5)
Quarter: 2024Q2

REPORT INFORMATION
  Report Type: Spontaneous
  Country: US (occurrence: US)
  Receive Date: 20240320
  Receipt Date: 20240510
  Transmission Date: 20240716
  Serious: No
  Sender: FDA-Public Use
  Company Number: US-PFIZER INC-202400054579

PATIENT
  Age: 4 Year
  Sex: Female
  Weight: 15.873 kg

DRUGS (1)
  1. GENOTROPIN [Suspect]
     Active Substance: SOMATROPIN
     Dosage: 0.6 MG, DAILY

REACTIONS (1)
  - Device physical property issue [Recovered/Resolved]

NARRATIVE: CASE EVENT DATE: 20240122
